FAERS Safety Report 16159013 (Version 2)
Quarter: 2019Q2

REPORT INFORMATION
  Report Type: Spontaneous
  Country: US (occurrence: US)
  Receive Date: 20190404
  Receipt Date: 20190416
  Transmission Date: 20190711
  Serious: No
  Sender: FDA-Public Use
  Company Number: US-SHIRE-US201910963

PATIENT
  Sex: Female

DRUGS (2)
  1. GAMUNEX [Concomitant]
     Active Substance: HUMAN IMMUNOGLOBULIN G
     Indication: PRODUCT USED FOR UNKNOWN INDICATION
  2. HYQVIA [Suspect]
     Active Substance: HUMAN IMMUNOGLOBULIN G\HYALURONIDASE RECOMBINANT HUMAN
     Indication: PRODUCT USED FOR UNKNOWN INDICATION
     Dosage: 240 MILLILITER, 1X/WEEK
     Route: 058
     Dates: start: 20181215, end: 20181215

REACTIONS (9)
  - Vulvovaginal swelling [Unknown]
  - Wrong product administered [Unknown]
  - Dysuria [Unknown]
  - Oropharyngeal pain [Unknown]
  - Wound [Unknown]
  - Headache [Unknown]
  - Inflammation [Unknown]
  - Tissue injury [Unknown]
  - Vulvovaginal pruritus [Unknown]

NARRATIVE: CASE EVENT DATE: 20181215
